FAERS Safety Report 5283033-5 (Version None)
Quarter: 2007Q2

REPORT INFORMATION
  Report Type: 
  Country: None (occurrence: None)
  Receive Date: 20070402
  Receipt Date: 20070320
  Transmission Date: 20071010
  Serious: Yes (Other)
  Sender: FDA-Public Use
  Company Number: PHBS2007BR05179

PATIENT
  Age: 66 Year
  Sex: Female
  Weight: 77 kg

DRUGS (5)
  1. VOLTAREN [Suspect]
     Indication: PAIN
     Dosage: 50 MG/DAY
  2. CATAFLAM [Suspect]
     Indication: PAIN
  3. GLUPORIOMIN [Concomitant]
  4. ANADOR [Concomitant]
     Dosage: 1 DF, Q8H
  5. LISADOR [Concomitant]
     Indication: PAIN
     Dosage: 1 TAB EVERY 12 OR 8 HOURS

REACTIONS (1)
  - CHONDROPATHY [None]
